FAERS Safety Report 20311139 (Version 1)
Quarter: 2022Q1

REPORT INFORMATION
  Report Type: Spontaneous
  Country: US (occurrence: None)
  Receive Date: 20220107
  Receipt Date: 20220107
  Transmission Date: 20220423
  Serious: Yes (Disabling)
  Sender: FDA-Public Use
  Company Number: None

PATIENT
  Age: 24 Year
  Sex: Male
  Weight: 92.25 kg

DRUGS (2)
  1. ZICAM COLD REMEDY NASAL GEL [Suspect]
     Active Substance: HOMEOPATHICS\ZINC ACETATE\ZINC GLUCONATE
     Indication: Nasopharyngitis
     Dates: start: 20081224, end: 20081224
  2. VITAMIN D [Concomitant]
     Active Substance: VITAMIN D NOS

REACTIONS (8)
  - Quality of life decreased [None]
  - Malaise [None]
  - Nasal discomfort [None]
  - Chemical burn [None]
  - Anosmia [None]
  - Ageusia [None]
  - Recalled product administered [None]
  - Feeling abnormal [None]

NARRATIVE: CASE EVENT DATE: 20081224
